FAERS Safety Report 17945027 (Version 5)
Quarter: 2021Q1

REPORT INFORMATION
  Report Type: Spontaneous
  Country: DE (occurrence: DE)
  Receive Date: 20200626
  Receipt Date: 20210203
  Transmission Date: 20210419
  Serious: Yes (Death, Hospitalization)
  Sender: FDA-Public Use
  Company Number: DE-CELLTRION INC.-2020DE023634

PATIENT

DRUGS (9)
  1. RITUXIMAB (UNKNOWN) [Suspect]
     Active Substance: RITUXIMAB
     Indication: MANTLE CELL LYMPHOMA
     Dosage: MAINTENANCE THERAPY
     Route: 065
  2. IMBRUVICA [Suspect]
     Active Substance: IBRUTINIB
     Indication: MANTLE CELL LYMPHOMA
     Dosage: MAINTENANCE THERAPY, DAILY
     Route: 048
  3. RITUXIMAB (UNKNOWN) [Suspect]
     Active Substance: RITUXIMAB
     Indication: DIFFUSE LARGE B-CELL LYMPHOMA
     Dosage: UNK
  4. RITUXIMAB (UNKNOWN) [Suspect]
     Active Substance: RITUXIMAB
     Dosage: AS PART OF R?DEVIC TREATMENT FOR SEVERAL MONTHS (LAST THERAPY CYCLE WAS ADMINISTERED 2 WEEKS BEFORE
     Route: 065
  5. IBRUTINIB [Suspect]
     Active Substance: IBRUTINIB
     Indication: CHRONIC KIDNEY DISEASE
     Dosage: MAINTENANCE THERAPY, DAILY
     Route: 048
  6. IBRUTINIB [Suspect]
     Active Substance: IBRUTINIB
     Dosage: UNK, DAILY
     Route: 048
  7. RITUXIMAB (UNKNOWN) [Suspect]
     Active Substance: RITUXIMAB
     Indication: CHRONIC KIDNEY DISEASE
     Dosage: UNK
     Route: 065
  8. IMBRUVICA [Suspect]
     Active Substance: IBRUTINIB
     Dosage: UNK, QD
     Route: 048
  9. IBRUTINIB [Suspect]
     Active Substance: IBRUTINIB
     Indication: MANTLE CELL LYMPHOMA
     Dosage: UNK, DAILY
     Route: 048

REACTIONS (6)
  - Off label use [Unknown]
  - Pyrexia [Fatal]
  - Respiratory failure [Fatal]
  - Viraemia [Fatal]
  - COVID-19 pneumonia [Fatal]
  - COVID-19 [Fatal]
